FAERS Safety Report 11189063 (Version 2)
Quarter: 2015Q2

REPORT INFORMATION
  Report Type: Spontaneous
  Country: JP (occurrence: None)
  Receive Date: 20150611
  Receipt Date: 20150619
  Transmission Date: 20150821
  Serious: Yes (Other)
  Sender: FDA-Public Use
  Company Number: JP2015JPN074992

PATIENT
  Age: 41 Year
  Sex: Male

DRUGS (4)
  1. RETROVIR [Suspect]
     Active Substance: ZIDOVUDINE
     Route: 048
  2. AZITHROMYCIN HYDRATE [Concomitant]
     Active Substance: AZITHROMYCIN DIHYDRATE
  3. ISENTRESS [Concomitant]
     Active Substance: RALTEGRAVIR POTASSIUM
  4. EPZICOM [Suspect]
     Active Substance: ABACAVIR SULFATE\LAMIVUDINE
     Route: 048

REACTIONS (12)
  - Cytomegalovirus chorioretinitis [None]
  - Mass [None]
  - Retinal tear [None]
  - Pyrexia [None]
  - Paresis [None]
  - Lymphadenopathy mediastinal [None]
  - Immune reconstitution inflammatory syndrome [None]
  - Mycobacterium avium complex infection [None]
  - Joint swelling [None]
  - Vision blurred [None]
  - Vitreous floaters [None]
  - Lymphoma [None]
